FAERS Safety Report 16887815 (Version 1)
Quarter: 2019Q4

REPORT INFORMATION
  Report Type: Spontaneous
  Country: US (occurrence: US)
  Receive Date: 20191005
  Receipt Date: 20191005
  Transmission Date: 20200122
  Serious: Yes (Other)
  Sender: FDA-Public Use
  Company Number: US-JNJFOC-20190826883

PATIENT
  Age: 33 Year
  Sex: Female

DRUGS (1)
  1. CLEAN AND CLEAR PERSA-GEL 10 [Suspect]
     Active Substance: BENZOYL PEROXIDE
     Indication: PRODUCT USED FOR UNKNOWN INDICATION
     Route: 061
     Dates: start: 20190816, end: 201908

REACTIONS (4)
  - Application site swelling [Recovered/Resolved]
  - Application site dryness [Recovered/Resolved]
  - Hypersensitivity [Recovered/Resolved]
  - Application site pain [Recovered/Resolved]

NARRATIVE: CASE EVENT DATE: 20190818
